FAERS Safety Report 5386290-X (Version None)
Quarter: 2007Q3

REPORT INFORMATION
  Report Type: 
  Country: None (occurrence: None)
  Receive Date: 20070713
  Receipt Date: 20070702
  Transmission Date: 20080115
  Serious: Yes (Other)
  Sender: FDA-Public Use
  Company Number: PHBS2007BR06131

PATIENT
  Sex: Female
  Weight: 69 kg

DRUGS (5)
  1. DIOVAN AMLO [Suspect]
     Indication: HYPERTENSION
     Dosage: 80/5 MG, ONCE DAILY
     Route: 048
     Dates: start: 20070322
  2. CLONAZEPAM [Concomitant]
     Dosage: 10 DF, PRN
  3. DOXYCYCLINE [Concomitant]
     Indication: EYE INFECTION
     Dosage: 100 MG, QD
     Route: 048
  4. GLUCOSAMINE [Concomitant]
     Indication: OSTEOARTHRITIS
     Dosage: 1.2 - 1.5 G/DAY
  5. PREDNISOLONE W/SULFACETAMIDE SODIUM [Concomitant]
     Indication: EYE INFECTION
     Route: 047

REACTIONS (8)
  - ABDOMINAL PAIN UPPER [None]
  - ANGINA PECTORIS [None]
  - BLOOD PRESSURE INCREASED [None]
  - DIABETES MELLITUS [None]
  - DRUG ADMINISTRATION ERROR [None]
  - DYSPNOEA [None]
  - FATIGUE [None]
  - HEADACHE [None]
